FAERS Safety Report 8560623-5 (Version None)
Quarter: 2012Q3

REPORT INFORMATION
  Report Type: 
  Country: None (occurrence: None)
  Receive Date: 20120802
  Receipt Date: 20120726
  Transmission Date: 20120928
  Serious: Yes (Hospitalization, Other)
  Sender: FDA-Public Use
  Company Number: JP-VERTEX PHARMACEUTICALS INC.-AE-2012-003623

PATIENT
  Age: 62 Year
  Sex: Male

DRUGS (21)
  1. PAXIL [Concomitant]
     Route: 048
     Dates: start: 20120414
  2. REBETOL [Concomitant]
     Route: 048
     Dates: start: 20120308
  3. REBETOL [Concomitant]
     Route: 048
     Dates: start: 20120712
  4. CLOBETASOL PROPIONATE [Concomitant]
     Route: 061
     Dates: start: 20120128
  5. TELAVIC (TELAPREVIR) [Suspect]
     Route: 048
     Dates: start: 20120324, end: 20120406
  6. REBETOL [Concomitant]
     Route: 048
     Dates: start: 20120517, end: 20120711
  7. NESPO [Concomitant]
     Route: 058
     Dates: start: 20120517, end: 20120531
  8. REBETOL [Concomitant]
     Indication: HEPATITIS C
     Route: 048
     Dates: start: 20120126, end: 20120229
  9. TELAVIC (TELAPREVIR) [Suspect]
     Indication: HEPATITIS C
     Route: 048
     Dates: start: 20120126, end: 20120307
  10. REBETOL [Concomitant]
     Route: 048
     Dates: start: 20120324, end: 20120330
  11. NESPO [Concomitant]
     Route: 058
     Dates: start: 20120614
  12. REBETOL [Concomitant]
     Route: 048
     Dates: start: 20120331, end: 20120406
  13. PEG-INTRON [Concomitant]
     Route: 058
     Dates: start: 20120126
  14. PEG-INTRON [Concomitant]
     Route: 058
     Dates: start: 20120331
  15. TELAVIC (TELAPREVIR) [Suspect]
     Route: 048
     Dates: start: 20120308, end: 20120321
  16. REBETOL [Concomitant]
     Route: 048
     Dates: start: 20120301, end: 20120307
  17. PEG-INTRON [Concomitant]
     Route: 058
  18. ALLOPURINOL [Concomitant]
     Route: 048
     Dates: end: 20120430
  19. REBETOL [Concomitant]
     Route: 048
     Dates: start: 20120315, end: 20120322
  20. REBETOL [Concomitant]
     Route: 048
     Dates: start: 20120419, end: 20120516
  21. SEDEKOPAN [Concomitant]
     Route: 048
     Dates: start: 20120414

REACTIONS (6)
  - RENAL IMPAIRMENT [None]
  - RASH [None]
  - DECREASED APPETITE [None]
  - MALAISE [None]
  - HAEMOGLOBIN DECREASED [None]
  - ANAEMIA [None]
